FAERS Safety Report 17454752 (Version 1)
Quarter: 2020Q1

REPORT INFORMATION
  Report Type: Spontaneous
  Country: TW (occurrence: TW)
  Receive Date: 20200222
  Receipt Date: 20200222
  Transmission Date: 20200409
  Serious: Yes (Hospitalization, Other)
  Sender: FDA-Public Use
  Company Number: TW-ELI_LILLY_AND_COMPANY-TW202002008303

PATIENT
  Age: 55 Year
  Sex: Female

DRUGS (1)
  1. OLUMIANT [Suspect]
     Active Substance: BARICITINIB
     Indication: RHEUMATOID ARTHRITIS
     Dosage: 4 MG, DAILY
     Route: 048
     Dates: start: 20191118, end: 20191202

REACTIONS (3)
  - Hepatitis acute [Unknown]
  - Drug-induced liver injury [Unknown]
  - Hepatitis B [Unknown]

NARRATIVE: CASE EVENT DATE: 20200216
